FAERS Safety Report 15000148 (Version 10)
Quarter: 2022Q1

REPORT INFORMATION
  Report Type: Report from Study
  Country: FR (occurrence: None)
  Receive Date: 20180612
  Receipt Date: 20220112
  Transmission Date: 20220424
  Serious: Yes (Hospitalization)
  Sender: FDA-Public Use
  Company Number: FR-ROCHE-2132559

PATIENT
  Age: 53 Year
  Sex: Male
  Weight: 69 kg

DRUGS (10)
  1. TIRAGOLUMAB [Suspect]
     Active Substance: TIRAGOLUMAB
     Indication: Oesophageal carcinoma
     Dosage: ON 09/MAY/2018, THE PATIENT RECEIVED THE LAST DOSE OF MTIG7192A (600 MG) PRIOR TO ONSET OF THE EVENT
     Route: 042
     Dates: start: 20180214, end: 20180611
  2. ATEZOLIZUMAB [Suspect]
     Active Substance: ATEZOLIZUMAB
     Indication: Oesophageal carcinoma
     Dosage: ON 09/MAY/2018, THE PATIENT RECEIVED THE LAST DOSE OF ATEZOLIZUMAB PRIOR TO ONSET OF THE EVENT (TIME
     Route: 042
     Dates: start: 20180214, end: 20180611
  3. ESOMEPRAZOLE [Concomitant]
     Active Substance: ESOMEPRAZOLE
     Route: 048
     Dates: start: 20180215
  4. RAMIPRIL [Concomitant]
     Active Substance: RAMIPRIL
     Indication: Hypertension
     Route: 048
     Dates: start: 20180322
  5. RAMIPRIL [Concomitant]
     Active Substance: RAMIPRIL
     Route: 048
     Dates: start: 20140612
  6. ACETAMINOPHEN\CODEINE PHOSPHATE [Concomitant]
     Active Substance: ACETAMINOPHEN\CODEINE PHOSPHATE
     Indication: Pain
     Dosage: DOSE UNKNOWN
     Route: 048
     Dates: start: 20180322
  7. ARIXTRA [Concomitant]
     Active Substance: FONDAPARINUX SODIUM
     Indication: Phlebitis
     Route: 058
     Dates: start: 20180603, end: 20180612
  8. LOVENOX [Concomitant]
     Active Substance: ENOXAPARIN SODIUM
     Indication: Phlebitis
     Route: 058
     Dates: start: 20180608, end: 20180612
  9. SKENAN [Concomitant]
     Active Substance: MORPHINE SULFATE
     Indication: Pain
     Route: 048
  10. MORPHINE SULFATE [Concomitant]
     Active Substance: MORPHINE SULFATE
     Indication: Pain
     Route: 048
     Dates: start: 20180731

REACTIONS (2)
  - Generalised oedema [Recovered/Resolved]
  - Capillary leak syndrome [Recovering/Resolving]

NARRATIVE: CASE EVENT DATE: 20180526
